FAERS Safety Report 8881298 (Version 1)
Quarter: 2012Q4

REPORT INFORMATION
  Report Type: 
  Country: DE (occurrence: DE)
  Receive Date: 20121031
  Receipt Date: 20121031
  Transmission Date: 20130627
  Serious: Yes (Hospitalization)
  Sender: FDA-Public Use
  Company Number: DE-GLAXOSMITHKLINE-D0077300A

PATIENT
  Sex: Female
  Weight: 57 kg

DRUGS (7)
  1. BENLYSTA [Suspect]
     Indication: SYSTEMIC LUPUS ERYTHEMATOSUS
     Dosage: 400MG Every 28 days
     Route: 042
     Dates: start: 20120507, end: 20120822
  2. AZATHIOPRINE [Concomitant]
     Indication: SYSTEMIC LUPUS ERYTHEMATOSUS
     Dosage: 100MG per day
     Route: 048
     Dates: end: 20120904
  3. QUENSYL [Concomitant]
     Indication: SYSTEMIC LUPUS ERYTHEMATOSUS
     Dosage: 200MG per day
     Route: 048
  4. PREDNISOLON [Concomitant]
     Indication: SYSTEMIC LUPUS ERYTHEMATOSUS
     Route: 042
  5. FOSINOPRIL [Concomitant]
     Indication: PROPHYLAXIS
     Dosage: 5MG Per day
     Route: 048
  6. RISEDRONATE [Concomitant]
     Indication: OSTEOPOROSIS
     Dosage: 35MG Weekly
     Route: 048
  7. CYCLOPHOSPHAMIDE [Concomitant]
     Indication: SYSTEMIC LUPUS ERYTHEMATOSUS
     Route: 042

REACTIONS (4)
  - Skin disorder [Recovering/Resolving]
  - Systemic lupus erythematosus [Recovering/Resolving]
  - Drug ineffective [Unknown]
  - Oedema peripheral [Unknown]
